FAERS Safety Report 18607029 (Version 1)
Quarter: 2020Q4

REPORT INFORMATION
  Report Type: Spontaneous
  Country: US (occurrence: US)
  Receive Date: 20201211
  Receipt Date: 20201211
  Transmission Date: 20210114
  Serious: No
  Sender: FDA-Public Use
  Company Number: US-EPIC PHARMA LLC-2020EPC00314

PATIENT
  Sex: Female

DRUGS (2)
  1. SOTALOL HYDROCHLORIDE (APOTEX) [Suspect]
     Active Substance: SOTALOL HYDROCHLORIDE
     Dosage: 80 MG, 2X/DAY
     Route: 048
     Dates: start: 20200525
  2. SOTALOL HYDROCHLORIDE. [Suspect]
     Active Substance: SOTALOL HYDROCHLORIDE
     Dosage: 80 MG, 2X/DAY
     Route: 048
     Dates: start: 2020

REACTIONS (1)
  - Pruritus [Not Recovered/Not Resolved]

NARRATIVE: CASE EVENT DATE: 2020
